FAERS Safety Report 9449891 (Version 1)
Quarter: 2013Q3

REPORT INFORMATION
  Report Type: Spontaneous
  Country: RS (occurrence: RS)
  Receive Date: 20130809
  Receipt Date: 20130809
  Transmission Date: 20140515
  Serious: Yes (Life-Threatening, Other)
  Sender: FDA-Public Use
  Company Number: RS-ROXANE LABORATORIES, INC.-2013-RO-01311RO

PATIENT
  Age: 33 Year
  Sex: Female

DRUGS (6)
  1. PREDNISONE [Suspect]
     Indication: SYSTEMIC LUPUS ERYTHEMATOSUS
     Dosage: 30 MG
  2. PREDNISONE [Suspect]
     Dosage: 20 MG
  3. AZATHIOPRINE [Suspect]
     Route: 048
  4. MYCOPHENOLATE MOFETIL [Suspect]
     Indication: PROTEINURIA
     Dates: start: 200506
  5. METHYLPREDNISOLONE [Suspect]
     Route: 042
  6. CYCLOPHOSPHAMIDE [Suspect]
     Route: 042

REACTIONS (15)
  - Encephalitis [Recovered/Resolved]
  - Cushing^s syndrome [Unknown]
  - Glomerulonephritis proliferative [Unknown]
  - Effusion [Unknown]
  - Hypertension [Unknown]
  - Oedema peripheral [Unknown]
  - Hepatosplenomegaly [Unknown]
  - Epilepsy [Unknown]
  - Agranulocytosis [Recovered/Resolved]
  - Renal failure [Recovered/Resolved]
  - Proteinuria [Recovered/Resolved]
  - Pyrexia [Unknown]
  - Bronchitis [Unknown]
  - Nausea [Unknown]
  - Inflammatory marker increased [Unknown]
